FAERS Safety Report 8600945-2 (Version None)
Quarter: 2012Q3

REPORT INFORMATION
  Report Type: 
  Country: None (occurrence: None)
  Receive Date: 20120817
  Receipt Date: 20120807
  Transmission Date: 20120928
  Serious: Yes (Hospitalization)
  Sender: FDA-Public Use
  Company Number: CA-EISAI INC-E7389-02721-CLI-CA

PATIENT
  Sex: Female
  Weight: 80 kg

DRUGS (1)
  1. EPIRUBICIN HYDROCHLORIDE [Suspect]
     Indication: BREAST CANCER
     Route: 041
     Dates: start: 20120711

REACTIONS (3)
  - FEBRILE NEUTROPENIA [None]
  - CONFUSIONAL STATE [None]
  - PYREXIA [None]
